FAERS Safety Report 9549004 (Version 2)
Quarter: 2013Q4

REPORT INFORMATION
  Report Type: Spontaneous
  Country: US (occurrence: US)
  Receive Date: 20130924
  Receipt Date: 20131115
  Transmission Date: 20140711
  Serious: No
  Sender: FDA-Public Use
  Company Number: US-PFIZER INC-2013272632

PATIENT
  Age: 61 Year
  Sex: Female
  Weight: 72.56 kg

DRUGS (3)
  1. TIKOSYN [Suspect]
     Indication: VENTRICULAR EXTRASYSTOLES
     Dosage: 500 UG, 2X/DAY
     Dates: start: 2012
  2. NORVASC [Concomitant]
     Indication: HYPERTENSION
     Dosage: 5 MG, DAILY
  3. LISINOPRIL [Concomitant]
     Indication: HYPERTENSION
     Dosage: 40 MG, DAILY

REACTIONS (2)
  - Off label use [Not Recovered/Not Resolved]
  - Abnormal dreams [Not Recovered/Not Resolved]
